FAERS Safety Report 8242391-X (Version None)
Quarter: 2012Q1

REPORT INFORMATION
  Report Type: 
  Country: None (occurrence: None)
  Receive Date: 20120329
  Receipt Date: 20120321
  Transmission Date: 20120608
  Serious: Yes (Hospitalization)
  Sender: FDA-Public Use
  Company Number: DK-BAYER-2012-023201

PATIENT
  Age: 37 Year
  Sex: Female

DRUGS (1)
  1. MIRENA [Suspect]
     Indication: CONTRACEPTION
     Dosage: 20 ?G/D, CONT
     Route: 015
     Dates: start: 20111130, end: 20120302

REACTIONS (4)
  - VAGINAL HAEMORRHAGE [None]
  - ENTEROCOCCAL INFECTION [None]
  - GENITAL HAEMORRHAGE [None]
  - PAIN [None]
